FAERS Safety Report 5716196-5 (Version None)
Quarter: 2008Q2

REPORT INFORMATION
  Report Type: 
  Country: None (occurrence: None)
  Receive Date: 20080424
  Receipt Date: 20080415
  Transmission Date: 20081010
  Serious: Yes (Hospitalization)
  Sender: FDA-Public Use
  Company Number: US-JNJFOC-20060601526

PATIENT
  Sex: Female
  Weight: 63.05 kg

DRUGS (2)
  1. ORTHO EVRA [Suspect]
     Indication: DRUG USE FOR UNKNOWN INDICATION
     Route: 062
  2. IBUPROFEN [Concomitant]
     Indication: PAIN IN EXTREMITY

REACTIONS (1)
  - THROMBOPHLEBITIS SUPERFICIAL [None]
